FAERS Safety Report 8986202 (Version 1)
Quarter: 2012Q4

REPORT INFORMATION
  Report Type: Spontaneous
  Country: US (occurrence: None)
  Receive Date: 20121219
  Receipt Date: 20121219
  Transmission Date: 20130627
  Serious: Yes (Other)
  Sender: FDA-Public Use
  Company Number: None

PATIENT
  Age: 30 Year
  Sex: Female
  Weight: 68.04 kg

DRUGS (2)
  1. CIPRO [Suspect]
     Indication: CYSTITIS BACTERIAL
     Dosage: 2 per day po
     Route: 048
     Dates: start: 20121204, end: 20121207
  2. CIPRO [Suspect]
     Indication: GASTROINTESTINAL BACTERIAL INFECTION
     Dosage: 2 per day po
     Route: 048
     Dates: start: 20121204, end: 20121207

REACTIONS (7)
  - Chest pain [None]
  - Heart rate increased [None]
  - Cardiac flutter [None]
  - Arthralgia [None]
  - Tendon pain [None]
  - Cardiac disorder [None]
  - Syncope [None]
